FAERS Safety Report 18920778 (Version 1)
Quarter: 2021Q1

REPORT INFORMATION
  Report Type: Spontaneous
  Country: US (occurrence: US)
  Receive Date: 20210222
  Receipt Date: 20210222
  Transmission Date: 20210420
  Serious: Yes (Other)
  Sender: FDA-Public Use
  Company Number: US-AMGEN-USASP2021025210

PATIENT
  Age: 65 Year
  Sex: Male

DRUGS (3)
  1. ROMIPLOSTIM [Suspect]
     Active Substance: ROMIPLOSTIM
     Indication: MYELOPROLIFERATIVE NEOPLASM
     Dosage: UNK UNK, QWK
     Route: 065
  2. RITUXAN [Concomitant]
     Active Substance: RITUXIMAB
  3. IMMUNOGLOBULIN I.V [Concomitant]
     Active Substance: HUMAN IMMUNOGLOBULIN G

REACTIONS (4)
  - Myelofibrosis [Unknown]
  - Myeloproliferative neoplasm [Unknown]
  - Drug ineffective for unapproved indication [Unknown]
  - Off label use [Unknown]
